FAERS Safety Report 7951160-7 (Version None)
Quarter: 2011Q4

REPORT INFORMATION
  Report Type: 
  Country: None (occurrence: None)
  Receive Date: 20111201
  Receipt Date: 20111122
  Transmission Date: 20120403
  Serious: Yes (Hospitalization)
  Sender: FDA-Public Use
  Company Number: BR-US-EMD SERONO, INC.-7098145

PATIENT
  Sex: Female

DRUGS (5)
  1. REBIF [Suspect]
     Indication: RELAPSING-REMITTING MULTIPLE SCLEROSIS
     Dates: start: 20111003
  2. MACRODANTIN [Concomitant]
  3. FLAVONID [Concomitant]
  4. MARIVAN [Concomitant]
  5. OMEPRAZOLE [Concomitant]

REACTIONS (5)
  - HYPOTENSION [None]
  - THROMBOSIS [None]
  - HALLUCINATION, VISUAL [None]
  - GAIT DISTURBANCE [None]
  - SENSATION OF HEAVINESS [None]
